FAERS Safety Report 7962399-9 (Version None)
Quarter: 2011Q4

REPORT INFORMATION
  Report Type: 
  Country: None (occurrence: None)
  Receive Date: 20111121
  Receipt Date: 20110914
  Transmission Date: 20120403
  Serious: No
  Sender: FDA-Public Use
  Company Number: 1000023876

PATIENT
  Age: 52 Year
  Sex: Female

DRUGS (10)
  1. PRILOSEC [Concomitant]
  2. VITAMIN D3 (COLECALCIFEROL) (COLECALCIFEROL) [Concomitant]
  3. KLONOPIN [Concomitant]
  4. VIIBRYD [Suspect]
     Indication: MAJOR DEPRESSION
     Dosage: 10 MG (10 MG, 1 IN 1 D), ORAL
     Route: 048
     Dates: start: 20110830, end: 20110905
  5. BONIVA (IBANDRONATE SODIUM) (IBANDRONATE SODIUM) [Concomitant]
  6. LEVOXYL (LEVOTHYROXINE SODIUM) (LEVOTHYROXINE SODIUM) [Concomitant]
  7. CALCIUM (CALCIUM) (CALCIUM) [Concomitant]
  8. VIIBRYD [Suspect]
     Indication: MAJOR DEPRESSION
     Dosage: 20 MG (20 MG, 1 IN 1 D), ORAL
     Route: 048
     Dates: start: 20110906, end: 20110907
  9. MOTRIN [Concomitant]
  10. ASPIRIN [Concomitant]

REACTIONS (7)
  - ABDOMINAL PAIN [None]
  - DISTURBANCE IN ATTENTION [None]
  - ANXIETY [None]
  - MUSCULOSKELETAL STIFFNESS [None]
  - AGITATION [None]
  - MEMORY IMPAIRMENT [None]
  - DEPRESSION [None]
